FAERS Safety Report 7807431-8 (Version None)
Quarter: 2011Q4

REPORT INFORMATION
  Report Type: 
  Country: None (occurrence: None)
  Receive Date: 20111011
  Receipt Date: 20110810
  Transmission Date: 20120403
  Serious: Yes (Hospitalization)
  Sender: FDA-Public Use
  Company Number: US-UCBSA-029923

PATIENT
  Age: 84 Year
  Sex: Female

DRUGS (21)
  1. PREMARIN [Concomitant]
     Dates: start: 19571001
  2. VITAMIN D [Concomitant]
     Indication: VITAMIN D DEFICIENCY
  3. PREDNISONE [Concomitant]
     Indication: RHEUMATOID ARTHRITIS
     Dates: start: 19800501, end: 20100201
  4. PREDNISONE [Concomitant]
     Dates: start: 20100201
  5. ZOFRAN [Concomitant]
     Dosage: 4 TO 8 MG AS NEEDED
     Route: 048
  6. CENTRUM [Concomitant]
     Indication: VITAMIN SUPPLEMENTATION
     Dates: start: 19700101
  7. DOCUSATE [Concomitant]
     Indication: CONSTIPATION
     Dosage: AS NEEDED
  8. SINEMET [Concomitant]
     Dates: start: 20091001
  9. TYLENOL-500 [Concomitant]
     Indication: ANALGESIC THERAPY
     Dosage: AS NEEDED
  10. SINEMET [Concomitant]
     Indication: RESTLESS LEGS SYNDROME
     Dates: start: 20090331, end: 20091001
  11. ATENOLOL [Concomitant]
     Indication: BLOOD PRESSURE
     Dates: start: 20100601
  12. HYDRALAZINE HCL [Concomitant]
     Indication: BLOOD PRESSURE
     Dates: start: 20100701
  13. OMEPRAZOLE [Concomitant]
     Indication: GASTROOESOPHAGEAL REFLUX DISEASE
     Dates: start: 19800501
  14. SINEMET [Concomitant]
     Dates: start: 20091001
  15. PREMARIN [Concomitant]
     Dates: start: 19571001
  16. I CAPS [Concomitant]
  17. ROTIGOTINE [Suspect]
     Indication: RESTLESS LEGS SYNDROME
     Route: 062
     Dates: start: 20090501
  18. AZATHIOPRINE [Concomitant]
     Indication: CROHN'S DISEASE
     Route: 048
  19. NEUPRO [Concomitant]
  20. OXYCODONE HCL [Concomitant]
     Indication: PAIN
     Dates: start: 20091210
  21. SINEMET [Concomitant]
     Dates: start: 20090331, end: 20091001

REACTIONS (1)
  - CEREBROVASCULAR ACCIDENT [None]
